FAERS Safety Report 6412711-7 (Version None)
Quarter: 2009Q4

REPORT INFORMATION
  Report Type: 
  Country: None (occurrence: None)
  Receive Date: 20091023
  Receipt Date: 20091020
  Transmission Date: 20100525
  Serious: Yes (Death, Hospitalization, Other)
  Sender: FDA-Public Use
  Company Number: PHHY2009JP41242

PATIENT
  Sex: Male
  Weight: 61 kg

DRUGS (11)
  1. NEORAL [Suspect]
     Indication: GLOMERULONEPHRITIS MEMBRANOUS
     Dosage: 60 - 100 MG DAILY
     Route: 048
     Dates: start: 20080810, end: 20080823
  2. PREDONINE [Suspect]
     Indication: GLOMERULONEPHRITIS
     Dosage: 20 - 40 MG DAILY
     Route: 048
     Dates: start: 20070715
  3. LOCHOL [Concomitant]
     Dosage: 30 MG
     Route: 048
     Dates: start: 20080807, end: 20080922
  4. THYRADIN [Concomitant]
     Dosage: 100 UG
     Route: 048
     Dates: start: 20061011
  5. ALFAROL [Concomitant]
     Dosage: 0.25 UG
     Route: 048
     Dates: start: 20080724, end: 20080922
  6. LASIX [Concomitant]
     Dosage: 40 MG
     Route: 048
     Dates: start: 20080810, end: 20080922
  7. VFEND [Concomitant]
     Dosage: 800 MG
     Route: 048
     Dates: start: 20080903, end: 20080924
  8. BAKTAR [Concomitant]
     Dosage: 4 DF
     Route: 048
     Dates: start: 20080922, end: 20080924
  9. ROCAIN [Concomitant]
     Dosage: 1 G
     Route: 042
     Dates: start: 20080922, end: 20080924
  10. DENOSINE ^TANABE^ [Concomitant]
     Dosage: 250 MG
     Route: 042
     Dates: start: 20080924
  11. FUNGUARD [Concomitant]
     Dosage: 300 MG
     Route: 042
     Dates: start: 20080924

REACTIONS (8)
  - ALANINE AMINOTRANSFERASE INCREASED [None]
  - ASPARTATE AMINOTRANSFERASE INCREASED [None]
  - BLOOD LACTATE DEHYDROGENASE INCREASED [None]
  - BRONCHOPULMONARY ASPERGILLOSIS [None]
  - ENDOTRACHEAL INTUBATION [None]
  - MECHANICAL VENTILATION [None]
  - PNEUMONIA CYTOMEGALOVIRAL [None]
  - RESPIRATORY FAILURE [None]
